FAERS Safety Report 8773553 (Version 3)
Quarter: 2012Q4

REPORT INFORMATION
  Report Type: 
  Country: SE (occurrence: SE)
  Receive Date: 20120907
  Receipt Date: 20120924
  Transmission Date: 20130627
  Serious: Yes (Other)
  Sender: FDA-Public Use
  Company Number: SE-GLAXOSMITHKLINE-B0828465A

PATIENT
  Age: 64 Year
  Sex: Female

DRUGS (8)
  1. SEROXAT [Suspect]
     Indication: DEPRESSION
     Dosage: 10MG per day
     Route: 065
     Dates: start: 20120523, end: 20120818
  2. SIMVASTATIN [Concomitant]
     Indication: HYPERTENSION
  3. UNKNOWN MEDICATION [Concomitant]
     Indication: HYPERTENSION
  4. ALLOPURINOL [Concomitant]
     Indication: GOUT
  5. SIFROL [Concomitant]
     Indication: RESTLESS LEGS SYNDROME
  6. B-VITAMIN [Concomitant]
  7. MULTIVITAMINS [Concomitant]
  8. CALCIUM [Concomitant]

REACTIONS (9)
  - Suicidal ideation [Unknown]
  - Dizziness [Recovered/Resolved]
  - Depression [Recovered/Resolved]
  - Depressed mood [Recovered/Resolved]
  - Emotional disorder [Recovered/Resolved]
  - Dissociation [Unknown]
  - Self esteem decreased [Unknown]
  - Discomfort [Unknown]
  - Product quality issue [Unknown]
